FAERS Safety Report 4837220-8 (Version None)
Quarter: 2005Q4

REPORT INFORMATION
  Report Type: 
  Country: None (occurrence: None)
  Receive Date: 20051122
  Receipt Date: 20051108
  Transmission Date: 20060501
  Serious: Yes (Life-Threatening)
  Sender: FDA-Public Use
  Company Number: 0205056

PATIENT
  Sex: Female

DRUGS (1)
  1. DEPODUR [Suspect]

REACTIONS (1)
  - RESPIRATORY ARREST [None]
